FAERS Safety Report 4919830-2 (Version None)
Quarter: 2006Q1

REPORT INFORMATION
  Report Type: 
  Country: None (occurrence: None)
  Receive Date: 20060217
  Receipt Date: 20060202
  Transmission Date: 20060701
  Serious: Yes (Death)
  Sender: FDA-Public Use
  Company Number: 2006S1001004

PATIENT
  Age: 85 Year
  Sex: Female

DRUGS (9)
  1. CLOZAPINE [Suspect]
     Indication: SCHIZOPHRENIA
     Dosage: 25 MG;TID;ORAL
     Route: 048
     Dates: start: 20010923, end: 20060101
  2. LEVOFLOXACIN [Concomitant]
  3. SALBUTAMOL [Concomitant]
  4. GUAIFENESIN [Concomitant]
  5. DOCUSATE SODIUM [Concomitant]
  6. GLIPIZIDE [Concomitant]
  7. FAMOTIDINE [Concomitant]
  8. SPIRONOLACTONE [Concomitant]
  9. FUROSEMIDE [Concomitant]

REACTIONS (1)
  - DEATH [None]
